FAERS Safety Report 12956547 (Version 1)
Quarter: 2016Q4

REPORT INFORMATION
  Report Type: Spontaneous
  Country: FR (occurrence: FR)
  Receive Date: 20161118
  Receipt Date: 20161118
  Transmission Date: 20170207
  Serious: Yes (Other)
  Sender: FDA-Public Use
  Company Number: FR-GUERBET LLC-1059755

PATIENT
  Age: 51 Year
  Sex: Male
  Weight: 87 kg

DRUGS (1)
  1. DOTAREM [Suspect]
     Active Substance: GADOTERATE MEGLUMINE
     Indication: NUCLEAR MAGNETIC RESONANCE IMAGING BRAIN
     Route: 042
     Dates: start: 20161107, end: 20161107

REACTIONS (7)
  - Bronchospasm [Recovered/Resolved]
  - Laryngeal discomfort [Recovered/Resolved]
  - Cough [Recovered/Resolved]
  - Type I hypersensitivity [Recovered/Resolved]
  - Pruritus [Recovered/Resolved]
  - Choking sensation [Recovered/Resolved]
  - Erythema [Recovered/Resolved]

NARRATIVE: CASE EVENT DATE: 20161107
